FAERS Safety Report 14263353 (Version 10)
Quarter: 2018Q4

REPORT INFORMATION
  Report Type: Spontaneous
  Country: BE (occurrence: BE)
  Receive Date: 20171208
  Receipt Date: 20181226
  Transmission Date: 20190204
  Serious: Yes (Hospitalization, Other)
  Sender: FDA-Public Use
  Company Number: BE-PFIZER INC-2017523509

PATIENT
  Age: 68 Year
  Sex: Male

DRUGS (2)
  1. CELEBREX [Suspect]
     Active Substance: CELECOXIB
     Indication: OSTEOARTHRITIS
     Dosage: 100 MG, DAILY
     Route: 048
     Dates: start: 20090611
  2. AMOXICLAV [Suspect]
     Active Substance: AMOXICILLIN\CLAVULANATE POTASSIUM
     Dosage: UNK
     Route: 048

REACTIONS (6)
  - Mitral valve incompetence [Unknown]
  - Limb injury [Unknown]
  - Cardiac arrest [Recovering/Resolving]
  - Cardiac failure [Unknown]
  - Anaphylactic shock [Unknown]
  - Hypertension [Unknown]

NARRATIVE: CASE EVENT DATE: 201706
